FAERS Safety Report 7327091-2 (Version None)
Quarter: 2011Q1

REPORT INFORMATION
  Report Type: 
  Country: None (occurrence: None)
  Receive Date: 20110222
  Receipt Date: 20110208
  Transmission Date: 20110831
  Serious: Yes (Hospitalization)
  Sender: FDA-Public Use
  Company Number: 2011SP000161

PATIENT
  Sex: Female

DRUGS (2)
  1. MAXAIR [Concomitant]
  2. ASMANEX TWISTHALER [Suspect]
     Indication: PRODUCT USED FOR UNKNOWN INDICATION
     Dosage: 220 MCG; QD
     Dates: start: 20101220

REACTIONS (2)
  - INCORRECT DOSE ADMINISTERED BY DEVICE [None]
  - ASTHMA [None]
